FAERS Safety Report 4763856-9 (Version None)
Quarter: 2005Q3

REPORT INFORMATION
  Report Type: 
  Country: None (occurrence: None)
  Receive Date: 20050908
  Receipt Date: 20050815
  Transmission Date: 20060218
  Serious: Yes (Death)
  Sender: FDA-Public Use
  Company Number: BE-ABBOTT-05P-013-0308416-00

PATIENT
  Sex: Female
  Weight: 58.5 kg

DRUGS (22)
  1. ZEMPLAR [Suspect]
     Indication: HYPERPARATHYROIDISM
     Route: 042
     Dates: start: 20050524, end: 20050618
  2. ZEMPLAR [Suspect]
     Route: 042
     Dates: start: 20050621, end: 20050712
  3. ZEMPLAR [Suspect]
     Route: 042
     Dates: start: 20050714, end: 20050716
  4. ZEMPLAR [Suspect]
     Route: 042
     Dates: start: 20050719, end: 20050808
  5. AMLODIPINE [Concomitant]
     Indication: HYPERTENSION
     Dates: start: 20050319, end: 20050602
  6. AMLODIPINE [Concomitant]
     Dates: start: 20050602, end: 20050808
  7. CANDESARTAN CILEXETIL [Concomitant]
     Indication: HYPERTENSION
     Dates: start: 20041027, end: 20050808
  8. CALCIUM ACETATE [Concomitant]
     Indication: HYPERPHOSPHATAEMIA
     Dates: start: 20041125, end: 20050716
  9. CALCIUM ACETATE [Concomitant]
     Dates: start: 20050716, end: 20050808
  10. PARACETAMOL [Concomitant]
     Indication: PAIN
     Dates: start: 20050203, end: 20050808
  11. EPOETIN ALFA [Concomitant]
     Indication: ANAEMIA
     Dates: start: 20050419, end: 20050531
  12. EPOETIN ALFA [Concomitant]
     Dates: start: 20050531, end: 20050618
  13. EPOETIN ALFA [Concomitant]
     Dates: start: 20050618, end: 20050808
  14. FOLIC ACID [Concomitant]
     Indication: VITAMIN B COMPLEX DEFICIENCY
     Dates: start: 20040508, end: 20050808
  15. NEUROBION FOR INJECTION [Concomitant]
     Indication: VITAMIN B COMPLEX DEFICIENCY
     Dates: start: 20050428, end: 20050808
  16. ATORVASTATIN CALCIUM [Concomitant]
     Indication: HYPERLIPIDAEMIA
     Dates: start: 20010724, end: 20050808
  17. LORMETAZEPAM [Concomitant]
     Indication: SLEEP DISORDER
     Dates: start: 20010724, end: 20050808
  18. CLOPIDOGREL BISULFATE [Concomitant]
     Indication: MYOCARDIAL ISCHAEMIA
     Dates: start: 20040508, end: 20050808
  19. CLOPIDOGREL BISULFATE [Concomitant]
     Indication: PLATELET AGGREGATION INCREASED
  20. METOPROLOL SUCCINATE [Concomitant]
     Indication: HYPERTENSION
     Dates: start: 20040508, end: 20050708
  21. SACCHARATED IRON OXIDE [Concomitant]
     Indication: ANAEMIA
     Dates: start: 20040529, end: 20050716
  22. RANITIDINE [Concomitant]
     Indication: PROPHYLAXIS AGAINST GASTROINTESTINAL ULCER
     Dates: start: 20040508, end: 20050808

REACTIONS (3)
  - CARDIAC DISORDER [None]
  - HYPERKALAEMIA [None]
  - SUDDEN DEATH [None]
